FAERS Safety Report 24787649 (Version 2)
Quarter: 2025Q2

REPORT INFORMATION
  Report Type: Spontaneous
  Country: US (occurrence: US)
  Receive Date: 20241230
  Receipt Date: 20250428
  Transmission Date: 20250716
  Serious: Yes (Other)
  Sender: BRISTOL-MYERS SQUIBB COMPANY
  Company Number: US-BRISTOL-MYERS SQUIBB COMPANY-2024-198963

PATIENT
  Age: 70 Year
  Sex: Male

DRUGS (10)
  1. REVLIMID [Suspect]
     Active Substance: LENALIDOMIDE
     Indication: Plasma cell myeloma in remission
     Route: 048
     Dates: start: 201605, end: 201706
  2. REVLIMID [Suspect]
     Active Substance: LENALIDOMIDE
     Route: 048
     Dates: start: 201707, end: 202312
  3. REVLIMID [Suspect]
     Active Substance: LENALIDOMIDE
     Dosage: TAKE WHOLE WITH WATER, WITH OR WITHOUT?FOOD AT APPROXIMATELY THE SAME TIME EACH DAY. REPEAT EVERY 28
     Route: 048
     Dates: start: 20240301, end: 202412
  4. IXAZOMIB [Suspect]
     Active Substance: IXAZOMIB
     Indication: Plasma cell myeloma
     Dosage: ONCE A WEEK ON DAYS 1, 8, AND 15 OF A 28-DAY TREATMENT CYCLE
     Route: 048
     Dates: start: 20240301, end: 202412
  5. DEXAMETHASONE [Suspect]
     Active Substance: DEXAMETHASONE
     Indication: Plasma cell myeloma
     Route: 048
     Dates: start: 201605, end: 201706
  6. DEXAMETHASONE [Suspect]
     Active Substance: DEXAMETHASONE
     Route: 048
     Dates: start: 20240105
  7. DEXAMETHASONE [Suspect]
     Active Substance: DEXAMETHASONE
     Dosage: TAKE 3 TABS BY MOUTH ONCE WEEKLY,
     Route: 048
     Dates: end: 202412
  8. ELIQUIS [Concomitant]
     Active Substance: APIXABAN
     Indication: Pulmonary embolism
  9. OXYCODONE [Concomitant]
     Active Substance: OXYCODONE
     Indication: Back pain
     Route: 048
  10. BORTEZOMIB [Concomitant]
     Active Substance: BORTEZOMIB
     Indication: Plasma cell myeloma
     Dates: start: 201605, end: 201706

REACTIONS (3)
  - Localised infection [Unknown]
  - Fatigue [Unknown]
  - Impaired healing [Unknown]

NARRATIVE: CASE EVENT DATE: 20240819
